FAERS Safety Report 15881994 (Version 2)
Quarter: 2019Q2

REPORT INFORMATION
  Report Type: Spontaneous
  Country: BR (occurrence: BR)
  Receive Date: 20190128
  Receipt Date: 20190503
  Transmission Date: 20190711
  Serious: Yes (Other)
  Sender: FDA-Public Use
  Company Number: BR-PFIZER INC-2019033134

PATIENT
  Age: 43 Year
  Sex: Female

DRUGS (1)
  1. SUTENT [Suspect]
     Active Substance: SUNITINIB MALATE
     Dosage: UNK
     Dates: start: 201901, end: 201903

REACTIONS (5)
  - Hair texture abnormal [Unknown]
  - Mouth injury [Unknown]
  - Cognitive disorder [Unknown]
  - Throat lesion [Unknown]
  - Tumour pain [Unknown]
